FAERS Safety Report 6744255-7 (Version None)
Quarter: 2010Q2

REPORT INFORMATION
  Report Type: 
  Country: None (occurrence: None)
  Receive Date: 20100527
  Receipt Date: 20100521
  Transmission Date: 20101027
  Serious: Yes (Other)
  Sender: FDA-Public Use
  Company Number: BR-ABBOTT-10P-020-0624110-00

PATIENT
  Age: 7 Year
  Sex: Female

DRUGS (3)
  1. VALPAKINE [Suspect]
     Indication: CONVULSION
     Route: 048
     Dates: start: 20091001, end: 20100123
  2. VALPAKINE [Suspect]
     Route: 048
     Dates: start: 20100123, end: 20100125
  3. OXCARBAZEPINE [Concomitant]
     Indication: DRUG USE FOR UNKNOWN INDICATION
     Dates: start: 20040101

REACTIONS (6)
  - CONVULSION [None]
  - HEADACHE [None]
  - PRODUCT QUALITY ISSUE [None]
  - PRODUCT TASTE ABNORMAL [None]
  - SKIN DISCOLOURATION [None]
  - VOMITING [None]
